FAERS Safety Report 21042455 (Version 2)
Quarter: 2022Q3

REPORT INFORMATION
  Report Type: Spontaneous
  Country: ES (occurrence: ES)
  Receive Date: 20220705
  Receipt Date: 20220812
  Transmission Date: 20221027
  Serious: Yes (Hospitalization, Other)
  Sender: FDA-Public Use
  Company Number: ES-PENSA-202201920

PATIENT

DRUGS (17)
  1. ATORVASTATIN [Suspect]
     Active Substance: ATORVASTATIN
     Indication: Hypercholesterolaemia
     Dosage: 0-0-1
     Route: 048
  2. ATORVASTATIN [Suspect]
     Active Substance: ATORVASTATIN
     Dosage: 10 MG, PER DAY
     Route: 065
  3. BISOPROLOL [Suspect]
     Active Substance: BISOPROLOL
     Indication: Arrhythmia
     Route: 065
  4. METFORMIN HYDROCHLORIDE [Suspect]
     Active Substance: METFORMIN HYDROCHLORIDE
     Indication: Type 2 diabetes mellitus
     Dosage: 1-1-1
     Route: 065
  5. METFORMIN HYDROCHLORIDE [Suspect]
     Active Substance: METFORMIN HYDROCHLORIDE
     Dosage: 875 MG, 3X PER DAY
     Route: 065
  6. RAMIPRIL [Concomitant]
     Active Substance: RAMIPRIL
     Indication: Hypertension
     Dosage: 1-0-0
     Route: 065
  7. Lormetazepam 1 mg [Concomitant]
     Indication: Insomnia
     Dosage: 0-0-1
     Route: 065
  8. Cianocobalamina 1 mg [Concomitant]
     Indication: Anaemia
     Route: 065
  9. Acido acetilsalicilico 125 mg [Concomitant]
     Indication: Product used for unknown indication
     Dosage: 0-1-0
     Route: 065
  10. ACETAMINOPHEN [Concomitant]
     Active Substance: ACETAMINOPHEN
     Indication: Intervertebral disc protrusion
     Dosage: 0-1-0
     Route: 065
  11. OMEPRAZOLE [Concomitant]
     Active Substance: OMEPRAZOLE
     Indication: Product used for unknown indication
     Dosage: 1-0-0
     Route: 065
  12. Indapamida 2.5 mg [Concomitant]
     Indication: Hypertension
     Dosage: 1-0-0
     Route: 065
  13. Metamizol 575 mg [Concomitant]
     Indication: Intervertebral disc protrusion
     Dosage: 1-0-1
     Route: 065
  14. Pentoxifilina 400 mg [Concomitant]
     Indication: Anaemia vitamin B12 deficiency
     Dosage: 1/MONTH
     Route: 065
  15. Pentoxifilina 400 mg [Concomitant]
     Indication: Peripheral venous disease
     Dosage: 1-0-1
     Route: 065
  16. Atorvastatina 10 mg [Concomitant]
     Indication: Hypercholesterolaemia
     Dosage: 0-0-1
     Route: 065
  17. ALLOPURINOL [Concomitant]
     Active Substance: ALLOPURINOL
     Indication: Hyperuricaemia
     Dosage: 1-0-0
     Route: 065

REACTIONS (13)
  - Anaemia [Recovered/Resolved]
  - Prescribed overdose [Recovered/Resolved]
  - Influenza like illness [Recovered/Resolved]
  - Atrial fibrillation [Recovered/Resolved]
  - Respiratory failure [Recovered/Resolved]
  - Flatulence [Recovered/Resolved]
  - Weight decreased [Recovered/Resolved]
  - Asthenia [Recovered/Resolved]
  - Abdominal pain [Recovered/Resolved]
  - Vomiting [Recovered/Resolved]
  - Nausea [Recovered/Resolved]
  - Dyspepsia [Recovered/Resolved]
  - Drug ineffective [Unknown]
